FAERS Safety Report 5304431-7 (Version None)
Quarter: 2007Q2

REPORT INFORMATION
  Report Type: 
  Country: None (occurrence: None)
  Receive Date: 20070423
  Receipt Date: 20070420
  Transmission Date: 20071010
  Serious: Yes (Disabling)
  Sender: FDA-Public Use
  Company Number: ES-BRISTOL-MYERS SQUIBB COMPANY-13755087

PATIENT
  Age: 79 Year
  Sex: Female

DRUGS (2)
  1. TRAZODONE HCL [Suspect]
     Indication: PSYCHIATRIC SYMPTOM
     Dates: end: 20060910
  2. SINOGAN [Suspect]
     Indication: PSYCHIATRIC SYMPTOM
     Route: 048
     Dates: end: 20060910

REACTIONS (2)
  - CONSTIPATION [None]
  - INTESTINAL OBSTRUCTION [None]
